FAERS Safety Report 25481474 (Version 1)
Quarter: 2025Q2

REPORT INFORMATION
  Report Type: Spontaneous
  Country: US (occurrence: US)
  Receive Date: 20250626
  Receipt Date: 20250626
  Transmission Date: 20250716
  Serious: No
  Sender: ITALFARMACO SPA
  Company Number: US-ITALFARMACO SPA-2179417

PATIENT
  Age: 8 Year
  Sex: Male
  Weight: 21.00 kg

DRUGS (5)
  1. DUVYZAT [Suspect]
     Active Substance: GIVINOSTAT
     Indication: Duchenne muscular dystrophy
     Dates: start: 20250503
  2. ENALAPRIL MALEATE [Concomitant]
     Active Substance: ENALAPRIL MALEATE
  3. VITAMIN D [Concomitant]
     Active Substance: VITAMIN D NOS
  4. FAMOTIDINE [Concomitant]
     Active Substance: FAMOTIDINE
  5. PREDNISONE [Concomitant]
     Active Substance: PREDNISONE

REACTIONS (1)
  - Diarrhoea [Not Recovered/Not Resolved]
